FAERS Safety Report 6213672-6 (Version None)
Quarter: 2009Q2

REPORT INFORMATION
  Report Type: 
  Country: None (occurrence: None)
  Receive Date: 20090601
  Receipt Date: 20090520
  Transmission Date: 20091009
  Serious: Yes (Other)
  Sender: FDA-Public Use
  Company Number: THQ2009A02774

PATIENT
  Age: 13 Year
  Sex: Female

DRUGS (1)
  1. LAPRAZOL FAST TAB (LANSOPRAZOLE) [Suspect]
     Indication: ABDOMINAL PAIN
     Dosage: 60 MG (30 MG, 2 IN 1 D) PER ORAL
     Route: 048
     Dates: start: 20090115, end: 20090127

REACTIONS (2)
  - GAIT DISTURBANCE [None]
  - MYALGIA [None]
